FAERS Safety Report 18143978 (Version 1)
Quarter: 2020Q3

REPORT INFORMATION
  Report Type: Spontaneous
  Country: CA (occurrence: CA)
  Receive Date: 20200813
  Receipt Date: 20200813
  Transmission Date: 20201103
  Serious: Yes (Hospitalization)
  Sender: FDA-Public Use
  Company Number: CA-ACCORD-195001

PATIENT
  Age: 71 Year
  Sex: Male
  Weight: 91 kg

DRUGS (2)
  1. METHOTREXATE. [Suspect]
     Active Substance: METHOTREXATE
     Indication: RHEUMATOID ARTHRITIS
     Dosage: 1 EVERY 1 WEEKS
     Route: 048
  2. OTEZLA [Concomitant]
     Active Substance: APREMILAST

REACTIONS (3)
  - Neutropenia [Recovered/Resolved]
  - Fournier^s gangrene [Recovered/Resolved]
  - Pancytopenia [Recovered/Resolved]
